FAERS Safety Report 13147735 (Version 1)
Quarter: 2017Q1

REPORT INFORMATION
  Report Type: Spontaneous
  Country: KZ (occurrence: KZ)
  Receive Date: 20170125
  Receipt Date: 20170125
  Transmission Date: 20170428
  Serious: Yes (Death)
  Sender: FDA-Public Use
  Company Number: KZ-ROCHE-1884162

PATIENT
  Age: 83 Year
  Sex: Male

DRUGS (4)
  1. PREDNISONE. [Suspect]
     Active Substance: PREDNISONE
     Indication: B-CELL LYMPHOMA STAGE III
     Route: 048
     Dates: start: 20161226, end: 20161230
  2. MABTHERA [Suspect]
     Active Substance: RITUXIMAB
     Indication: B-CELL LYMPHOMA STAGE III
     Route: 041
     Dates: start: 20161227, end: 20161227
  3. CYCLOPHOSPHAMIDE. [Suspect]
     Active Substance: CYCLOPHOSPHAMIDE
     Indication: B-CELL LYMPHOMA STAGE III
     Route: 041
     Dates: start: 20161226, end: 20161230
  4. VINCRISTIN [Suspect]
     Active Substance: VINCRISTINE
     Indication: B-CELL LYMPHOMA STAGE III
     Route: 040
     Dates: start: 20161226, end: 20161226

REACTIONS (2)
  - Multiple organ dysfunction syndrome [Fatal]
  - Pancytopenia [Fatal]

NARRATIVE: CASE EVENT DATE: 20170101
